FAERS Safety Report 8550123-0 (Version None)
Quarter: 2012Q2

REPORT INFORMATION
  Report Type: 
  Country: None (occurrence: None)
  Receive Date: 20120416
  Receipt Date: 20090731
  Transmission Date: 20120825
  Serious: Yes (Other)
  Sender: FDA-Public Use
  Company Number: PHEH2009US08606

PATIENT

DRUGS (3)
  1. TEKTURNA [Suspect]
     Dosage: 150 MG, UNK
  2. CYCLOSPORINE [Concomitant]
  3. DIOVAN [Suspect]

REACTIONS (1)
  - LIP SWELLING [None]
